FAERS Safety Report 9463511 (Version 2)
Quarter: 2013Q4

REPORT INFORMATION
  Report Type: Spontaneous
  Country: US (occurrence: US)
  Receive Date: 20130819
  Receipt Date: 20131028
  Transmission Date: 20140711
  Serious: No
  Sender: FDA-Public Use
  Company Number: US-009507513-1308USA004078

PATIENT
  Sex: 0
  Weight: 60.77 kg

DRUGS (2)
  1. NEXPLANON [Suspect]
     Dosage: ONE ROD EVERY THREE YEARS
     Route: 059
     Dates: start: 20130731, end: 20130731
  2. NEXPLANON [Suspect]
     Dosage: UNK
     Route: 059
     Dates: start: 20130731

REACTIONS (2)
  - Device difficult to use [Recovered/Resolved]
  - No adverse event [Unknown]
